FAERS Safety Report 7384205-6 (Version None)
Quarter: 2011Q1

REPORT INFORMATION
  Report Type: 
  Country: None (occurrence: None)
  Receive Date: 20110323
  Receipt Date: 20110310
  Transmission Date: 20110831
  Serious: Yes (Life-Threatening, Hospitalization)
  Sender: FDA-Public Use
  Company Number: 2011AC000021

PATIENT
  Age: 77 Year
  Sex: Male

DRUGS (20)
  1. FUROSEMIDE [Concomitant]
  2. ASPIRIN [Concomitant]
  3. DIGIBIND [Concomitant]
  4. PHENERGAN HCL [Concomitant]
  5. SODIUM BICARBONATE [Concomitant]
  6. IRON [Concomitant]
  7. ZOCOR [Concomitant]
  8. DIGOXIN [Suspect]
     Dosage: 0.125 MG; QD; PO
     Route: 048
     Dates: start: 20080221
  9. WARFARIN [Concomitant]
  10. IMODIUM [Concomitant]
  11. METOPROLOL TARTRATE [Concomitant]
  12. CALCITRIOL [Concomitant]
  13. DOPAMINE HCL [Concomitant]
  14. ACETAMINOPHEN [Concomitant]
  15. POTASSIUM [Concomitant]
  16. TUMS [Concomitant]
  17. DICLOFENAC [Concomitant]
  18. DIGOXIN [Suspect]
     Dosage: 0.25 MG; QD; PO
     Route: 048
     Dates: start: 20030402, end: 20080201
  19. ARANESP [Concomitant]
  20. PEPCID [Concomitant]

REACTIONS (31)
  - ABASIA [None]
  - CHROMATOPSIA [None]
  - SICK SINUS SYNDROME [None]
  - FEELING COLD [None]
  - HYPOTONIA [None]
  - ATRIAL FIBRILLATION [None]
  - HALLUCINATION [None]
  - AORTIC VALVE SCLEROSIS [None]
  - DELUSION [None]
  - TRICUSPID VALVE INCOMPETENCE [None]
  - NOCTURIA [None]
  - HAEMOGLOBIN DECREASED [None]
  - INJURY [None]
  - VISUAL IMPAIRMENT [None]
  - NAUSEA [None]
  - BRADYCARDIA [None]
  - HYPOPHAGIA [None]
  - RENAL DISORDER [None]
  - MITRAL VALVE INCOMPETENCE [None]
  - RENAL FAILURE CHRONIC [None]
  - BEDRIDDEN [None]
  - GAIT DISTURBANCE [None]
  - VOMITING [None]
  - CONFUSIONAL STATE [None]
  - DIARRHOEA [None]
  - LEFT VENTRICULAR HYPERTROPHY [None]
  - TOXICITY TO VARIOUS AGENTS [None]
  - HALO VISION [None]
  - OEDEMA PERIPHERAL [None]
  - URINE OUTPUT DECREASED [None]
  - TACHYARRHYTHMIA [None]
